FAERS Safety Report 4348288-X (Version None)
Quarter: 2004Q2

REPORT INFORMATION
  Report Type: 
  Country: None (occurrence: None)
  Receive Date: 20040422
  Receipt Date: 20040415
  Transmission Date: 20050107
  Serious: Yes (Other)
  Sender: FDA-Public Use
  Company Number: 2004209490ZA

PATIENT
  Age: 44 Year
  Sex: Female

DRUGS (1)
  1. LINEZOLID (LINEZOLID) SOLUTION, STERILE [Suspect]
     Indication: STAPHYLOCOCCAL INFECTION
     Dosage: 600 MG, BID
     Dates: start: 20040304, end: 20040317

REACTIONS (2)
  - EYE PAIN [None]
  - OPTIC NEURITIS [None]
